FAERS Safety Report 13162276 (Version 1)
Quarter: 2017Q1

REPORT INFORMATION
  Report Type: Spontaneous
  Country: US (occurrence: US)
  Receive Date: 20170124
  Receipt Date: 20170124
  Transmission Date: 20170428
  Serious: No
  Sender: FDA-Public Use
  Company Number: None

PATIENT
  Age: 1 Year
  Sex: Male
  Weight: 9 kg

DRUGS (1)
  1. TAMIFLU [Suspect]
     Active Substance: OSELTAMIVIR PHOSPHATE
     Indication: INFLUENZA B VIRUS TEST POSITIVE
     Dosage: ?          QUANTITY:1 TEASPOON(S);?
     Route: 048
     Dates: start: 20170120, end: 20170123

REACTIONS (6)
  - Abnormal behaviour [None]
  - Dyskinesia [None]
  - Hypotonia [None]
  - Poor quality sleep [None]
  - Vision blurred [None]
  - Feeling abnormal [None]

NARRATIVE: CASE EVENT DATE: 20170123
